FAERS Safety Report 16898301 (Version 1)
Quarter: 2019Q4

REPORT INFORMATION
  Report Type: Spontaneous
  Country: GB (occurrence: GB)
  Receive Date: 20191009
  Receipt Date: 20191009
  Transmission Date: 20200122
  Serious: Yes (Other)
  Sender: FDA-Public Use
  Company Number: GB-MYLANLABS-2019M1092419

PATIENT
  Age: 78 Year
  Sex: Female
  Weight: 61 kg

DRUGS (7)
  1. GAVISCON ADVANCE PEPPERMINT [Concomitant]
     Dosage: WHEN REQUIRED
     Dates: start: 20171110
  2. LEVOTHYROXINE SODIUM. [Concomitant]
     Active Substance: LEVOTHYROXINE SODIUM
     Dosage: 25 MICROGRAM, QD
     Dates: start: 20170703
  3. OMEPRAZOLE. [Suspect]
     Active Substance: OMEPRAZOLE
     Indication: DYSPEPSIA
     Dosage: 20 MILLIGRAM
     Dates: start: 20171109, end: 20171110
  4. BIMATOPROST. [Concomitant]
     Active Substance: BIMATOPROST
     Dosage: IN AFFECTED EYE IN EVENING.100MCG/ML
     Route: 050
     Dates: start: 20170703
  5. RANITIDINE. [Concomitant]
     Active Substance: RANITIDINE
     Dosage: 150 MILLIGRAM, QD
     Dates: start: 20171110
  6. TIMOLOL. [Concomitant]
     Active Substance: TIMOLOL
     Dosage: 4DROP,QD(1DROP EACH EYE)
     Route: 050
     Dates: start: 20170703
  7. DORZOLAMIDE [Concomitant]
     Active Substance: DORZOLAMIDE
     Dosage: 4DROPS,QD (1 IN EACH EYE)
     Route: 050
     Dates: start: 20170703

REACTIONS (1)
  - Mouth ulceration [Recovering/Resolving]

NARRATIVE: CASE EVENT DATE: 20171109
